FAERS Safety Report 16976895 (Version 2)
Quarter: 2019Q4

REPORT INFORMATION
  Report Type: Report from Study
  Country: RO (occurrence: RO)
  Receive Date: 20191030
  Receipt Date: 20191107
  Transmission Date: 20200122
  Serious: Yes (Other)
  Sender: FDA-Public Use
  Company Number: RO-GILEAD-2019-0435174

PATIENT
  Age: 33 Year
  Sex: Male

DRUGS (3)
  1. ELVITEGRAVIR/COBICISTAT/EMTRICITABINE/TENOFOVIR ALAFENAMIDE [Suspect]
     Active Substance: COBICISTAT\ELVITEGRAVIR\EMTRICITABINE\TENOFOVIR
     Indication: HIV INFECTION
     Dosage: UNK
     Route: 065
     Dates: start: 201810
  2. COAXIL [Concomitant]
     Active Substance: TIANEPTINE SODIUM
     Indication: MENTAL DISORDER
     Dosage: UNK
     Dates: start: 201808
  3. XANAX [Concomitant]
     Active Substance: ALPRAZOLAM
     Indication: MENTAL DISORDER
     Dosage: UNK
     Dates: start: 201808

REACTIONS (3)
  - Hepatocellular carcinoma [Unknown]
  - Off label use [Not Recovered/Not Resolved]
  - Hepatic cirrhosis [Not Recovered/Not Resolved]

NARRATIVE: CASE EVENT DATE: 201810
